FAERS Safety Report 4907201-4 (Version None)
Quarter: 2006Q1

REPORT INFORMATION
  Report Type: 
  Country: None (occurrence: None)
  Receive Date: 20060207
  Receipt Date: 20060116
  Transmission Date: 20060701
  Serious: Yes (Other)
  Sender: FDA-Public Use
  Company Number: US200601002637

PATIENT
  Age: 52 Year
  Sex: Male

DRUGS (15)
  1. CYMBALTA [Suspect]
     Indication: ANXIETY
     Dosage: 60 MG, DAILY (1/D), ORAL
     Route: 048
     Dates: start: 20050601, end: 20060113
  2. LISINOPRIL [Concomitant]
  3. ATENOLOL [Concomitant]
  4. METFORMIN HCL [Concomitant]
  5. GLYBURIDE (GLIBENCAMIDE) [Concomitant]
  6. HYDROCHLOROTHIAZIDE [Concomitant]
  7. GEMFIBROZIL [Concomitant]
  8. XANAX  /USA/ (ALPRAZOLAM) [Concomitant]
  9. LIPITOR [Concomitant]
  10. PRAVACHOL [Concomitant]
  11. AMOXICILLIN [Concomitant]
  12. LORTAB [Concomitant]
  13. ULTRAM [Concomitant]
  14. ZOLOFT [Concomitant]
  15. LEXAPRO   /USA/ (ESCITALOPRAM) [Concomitant]

REACTIONS (13)
  - BLOOD PRESSURE INCREASED [None]
  - BLOOD TRIGLYCERIDES INCREASED [None]
  - COUGH [None]
  - DIZZINESS [None]
  - HYPERACUSIS [None]
  - INFLUENZA LIKE ILLNESS [None]
  - INSOMNIA [None]
  - MALAISE [None]
  - RHINORRHOEA [None]
  - TINNITUS [None]
  - URTICARIA [None]
  - VISION BLURRED [None]
  - VISUAL DISTURBANCE [None]
